FAERS Safety Report 17200029 (Version 1)
Quarter: 2019Q4

REPORT INFORMATION
  Report Type: Spontaneous
  Country: HR (occurrence: HR)
  Receive Date: 20191226
  Receipt Date: 20191226
  Transmission Date: 20200122
  Serious: Yes (Other)
  Sender: FDA-Public Use
  Company Number: HR-TEVA-2019-HR-1156973

PATIENT
  Age: 77 Year
  Sex: Female

DRUGS (7)
  1. BISOPROLOL + PERINDOPRIL [Suspect]
     Active Substance: BISOPROLOL\PERINDOPRIL
     Dosage: 5/5 MG
  2. CARBAMAZEPIN [Suspect]
     Active Substance: CARBAMAZEPINE
     Dosage: 100 MG
  3. RIVAROXABAN [Suspect]
     Active Substance: RIVAROXABAN
     Dosage: 20 MG, UNK
  4. TAMOXIFEN [Suspect]
     Active Substance: TAMOXIFEN
     Dosage: 20 MG
  5. ATORVASTATIN CALCIUM. [Suspect]
     Active Substance: ATORVASTATIN CALCIUM
     Dosage: 40 MG
  6. INSULIN [Suspect]
     Active Substance: INSULIN NOS
     Dosage: AS RECOMMENDED
  7. AMIODARONE [Suspect]
     Active Substance: AMIODARONE
     Dosage: 200 MG

REACTIONS (1)
  - Myocardial ischaemia [Unknown]
